FAERS Safety Report 21674148 (Version 3)
Quarter: 2023Q1

REPORT INFORMATION
  Report Type: Spontaneous
  Country: CH (occurrence: CH)
  Receive Date: 20221202
  Receipt Date: 20230126
  Transmission Date: 20230418
  Serious: Yes (Hospitalization, Other)
  Sender: FDA-Public Use
  Company Number: CH-PFIZER INC-PV202200110702

PATIENT
  Age: 64 Year
  Sex: Male
  Weight: 78.6 kg

DRUGS (12)
  1. CYTARABINE [Suspect]
     Active Substance: CYTARABINE
     Indication: Mantle cell lymphoma stage IV
     Dosage: 3780 MG, CYCLIC (3 CYCLES OF R-DHAOX FROM 19AUG2022 WITH 2000MG/M2 EACH (TOTAL 3740-3820 MG))
     Route: 041
     Dates: start: 20220821, end: 20221119
  2. DEXAMETHASONE [Suspect]
     Active Substance: DEXAMETHASONE
     Indication: Mantle cell lymphoma stage IV
     Dosage: 40 MG, CYCLIC (ON DAYS 1-4 OF EACH DHOAX CYCLE. 3 CYCLES ON 19AUG2022, 30SEP2022 AND 18NOV2022)
     Route: 042
     Dates: start: 20220819
  3. DEXAMETHASONE [Suspect]
     Active Substance: DEXAMETHASONE
     Dosage: 40 MG, CYCLIC (ON DAYS 1-4 OF EACH DHOAX CYCLE)
     Route: 042
     Dates: end: 20221031
  4. RITUXIMAB [Suspect]
     Active Substance: RITUXIMAB
     Indication: Mantle cell lymphoma stage IV
     Dosage: 700 MG, CYCLIC (375MG/M2 TOTAL 700-700MG IN EACH R-CHOP AND R-DHAOX CYCLE, TOTAL 6 SINCE 28JUL2022)
     Route: 042
     Dates: start: 20220728, end: 20221118
  5. ELOXATIN [Suspect]
     Active Substance: OXALIPLATIN
     Indication: Mantle cell lymphoma stage IV
     Dosage: 250 MCI, CYCLIC (130MG/M2 IN EACH DHOAX CYCLE ON DAY 1, TOTAL 240-250MG)
     Route: 042
     Dates: start: 20220819, end: 20221118
  6. VALACIVIR MEPHA [Concomitant]
     Dosage: 500 MG, 2X/DAY (1-0-1)
     Route: 048
  7. SULFAMETHOXAZOLE\TRIMETHOPRIM [Concomitant]
     Active Substance: SULFAMETHOXAZOLE\TRIMETHOPRIM
     Indication: Antifungal prophylaxis
     Dosage: 800MG/160MG 1 EACH ON MONDAY, WEDNESDAY, FRIDAY
     Route: 048
  8. PANTOZOL [Concomitant]
     Active Substance: PANTOPRAZOLE SODIUM
     Dosage: 20 MG, 1X/DAY (1-0-0)
     Route: 048
  9. MOVICOL [Concomitant]
     Active Substance: POLYETHYLENE GLYCOL 3350\POTASSIUM CHLORIDE\SODIUM BICARBONATE\SODIUM CHLORIDE
     Indication: Constipation
     Dosage: AS NEEDED (IN RESERVE IN CASE OF CONSTIPATION MAXIMUM 2/24H)
     Route: 048
  10. MOTILIUM [Concomitant]
     Active Substance: DOMPERIDONE
     Indication: Nausea
     Dosage: 10 MG, AS NEEDED (MAX 3X1/24 IN RESERVE IN CASE OF NAUSEA)
     Route: 048
  11. METOCLOPRAMIDE HYDROCHLORIDE [Concomitant]
     Active Substance: METOCLOPRAMIDE HYDROCHLORIDE
     Indication: Nausea
     Dosage: AS NEEDED (RESERVE NAUSEA, MAX. 3X30 DROPS PER DAY)
     Route: 048
  12. FILGRASTIM [Concomitant]
     Active Substance: FILGRASTIM
     Dosage: IN EACH CYCLE R-CHOP AND DHOAX, DURATION UNTIL BONE MARROW REGENERATION, LAST FROM 22NOV2022
     Route: 058
     Dates: start: 20220812

REACTIONS (1)
  - Diverticulitis intestinal perforated [Recovered/Resolved with Sequelae]

NARRATIVE: CASE EVENT DATE: 20221122
